FAERS Safety Report 24715069 (Version 2)
Quarter: 2025Q3

REPORT INFORMATION
  Report Type: Report from Study
  Country: CA (occurrence: CA)
  Receive Date: 20241210
  Receipt Date: 20250802
  Transmission Date: 20251021
  Serious: Yes (Hospitalization, Other)
  Sender: ALEXION PHARMACEUTICALS
  Company Number: CA-AstraZeneca-2024A052848

PATIENT
  Sex: Female

DRUGS (7)
  1. TEZEPELUMAB [Suspect]
     Active Substance: TEZEPELUMAB
     Indication: Asthma
  2. TEZEPELUMAB [Suspect]
     Active Substance: TEZEPELUMAB
  3. VENTOLIN [Concomitant]
     Active Substance: ALBUTEROL SULFATE
     Dosage: DOSE: 100MCG 2 PUFF QID PRN
  4. PREDNISONE [Concomitant]
     Active Substance: PREDNISONE
  5. SINGULAIR [Concomitant]
     Active Substance: MONTELUKAST SODIUM
  6. SPIRIVA RESPIMAT [Concomitant]
     Active Substance: TIOTROPIUM BROMIDE
     Dosage: DOSE: 2.5 MCG 2 INH BID, START
  7. ZENHALE [Concomitant]
     Active Substance: FORMOTEROL FUMARATE\MOMETASONE FUROATE
     Dosage: 200/5 2 INH BID

REACTIONS (5)
  - Skin infection [Unknown]
  - Necrotising fasciitis [Unknown]
  - Pyrexia [Unknown]
  - Laboratory test abnormal [Unknown]
  - Leg amputation [Unknown]
